FAERS Safety Report 8485806 (Version 3)
Quarter: 2015Q4

REPORT INFORMATION
  Report Type: Spontaneous
  Country: CN (occurrence: CN)
  Receive Date: 20120330
  Receipt Date: 20151215
  Transmission Date: 20160305
  Serious: Yes (Hospitalization, Other)
  Sender: FDA-Public Use
  Company Number: CN-GILEAD-2012-0052955

PATIENT
  Age: 48 Year
  Sex: Male

DRUGS (1)
  1. ADEFOVIR DIPIVOXIL. [Suspect]
     Active Substance: ADEFOVIR DIPIVOXIL
     Indication: CHRONIC HEPATITIS B
     Dosage: 10 MG, QD
     Route: 048
     Dates: start: 2005

REACTIONS (8)
  - Bone metabolism disorder [Unknown]
  - Amino acid level increased [Unknown]
  - Osteoporosis [Unknown]
  - Urine lactic acid increased [Unknown]
  - Renal impairment [Unknown]
  - Fanconi syndrome acquired [Recovered/Resolved]
  - Gait disturbance [Recovered/Resolved]
  - Bone pain [Recovered/Resolved]

NARRATIVE: CASE EVENT DATE: 200907
